FAERS Safety Report 22039423 (Version 5)
Quarter: 2023Q4

REPORT INFORMATION
  Report Type: Report from Study
  Country: US (occurrence: US)
  Receive Date: 20230227
  Receipt Date: 20231215
  Transmission Date: 20240110
  Serious: No
  Sender: FDA-Public Use
  Company Number: US-002147023-NVSC2023US044022

PATIENT
  Age: 22 Year
  Sex: Male

DRUGS (4)
  1. KESIMPTA [Suspect]
     Active Substance: OFATUMUMAB
     Indication: Multiple sclerosis
     Dosage: 20 MG, QMO, INJECT 1 PEN (20MG) SUBCUTANEOUSLY MONTHLY STARTING AT WEEK 4 AS DIRECTED
     Route: 058
  2. KESIMPTA [Suspect]
     Active Substance: OFATUMUMAB
     Indication: Relapsing-remitting multiple sclerosis
     Dosage: 20 MG, QMO
     Route: 058
     Dates: start: 20230127
  3. KESIMPTA [Suspect]
     Active Substance: OFATUMUMAB
     Indication: Relapsing multiple sclerosis
  4. GABAPENTIN [Concomitant]
     Active Substance: GABAPENTIN
     Indication: Product used for unknown indication
     Dosage: UNK
     Route: 065

REACTIONS (6)
  - Muscular weakness [Unknown]
  - Insomnia [Unknown]
  - Temperature intolerance [Not Recovered/Not Resolved]
  - Back pain [Unknown]
  - Headache [Not Recovered/Not Resolved]
  - Central nervous system lesion [Recovering/Resolving]

NARRATIVE: CASE EVENT DATE: 20231101
